FAERS Safety Report 16198491 (Version 1)
Quarter: 2019Q2

REPORT INFORMATION
  Report Type: Spontaneous
  Country: US (occurrence: US)
  Receive Date: 20190415
  Receipt Date: 20190415
  Transmission Date: 20190711
  Serious: Yes (Death)
  Sender: FDA-Public Use
  Company Number: US-AMREGENT-20190691

PATIENT
  Age: 26 Week
  Sex: Female

DRUGS (1)
  1. ZINC SULFATE [Suspect]
     Active Substance: ZINC SULFATE\ZINC SULFATE ANHYDROUS
     Dosage: 330 MG/100ML
     Route: 042
     Dates: start: 20061020, end: 20061020

REACTIONS (4)
  - Cardiac failure [Fatal]
  - Accidental overdose [Fatal]
  - Toxicity to various agents [Fatal]
  - Product preparation error [Fatal]

NARRATIVE: CASE EVENT DATE: 2006
